FAERS Safety Report 13946528 (Version 2)
Quarter: 2017Q4

REPORT INFORMATION
  Report Type: Spontaneous
  Country: FR (occurrence: FR)
  Receive Date: 20170907
  Receipt Date: 20171005
  Transmission Date: 20180320
  Serious: Yes (Other)
  Sender: FDA-Public Use
  Company Number: FR-INCYTE CORPORATION-2017IN005544

PATIENT

DRUGS (3)
  1. JAKAVI [Suspect]
     Active Substance: RUXOLITINIB
     Dosage: 5 MG, QD
     Route: 065
     Dates: start: 20170719
  2. JAKAVI [Suspect]
     Active Substance: RUXOLITINIB
     Indication: POLYCYTHAEMIA VERA
     Dosage: 5 MG, BID
     Route: 048
     Dates: start: 20170427
  3. ASPEGIC [Concomitant]
     Active Substance: ASPIRIN DL-LYSINE
     Indication: PRODUCT USED FOR UNKNOWN INDICATION
     Dosage: 100 MG, QD (FOR 10 YEARS)
     Route: 048

REACTIONS (10)
  - Vertigo [Not Recovered/Not Resolved]
  - Dry eye [Unknown]
  - Herpes ophthalmic [Recovered/Resolved]
  - Ocular hyperaemia [Unknown]
  - Oral herpes [Recovered/Resolved]
  - Oedema [Unknown]
  - Influenza [Recovered/Resolved]
  - Pain [Unknown]
  - Eye irritation [Unknown]
  - Urinary tract infection [Recovered/Resolved]

NARRATIVE: CASE EVENT DATE: 20170705
